FAERS Safety Report 6395769-3 (Version None)
Quarter: 2009Q4

REPORT INFORMATION
  Report Type: 
  Country: None (occurrence: None)
  Receive Date: 20091009
  Receipt Date: 20091009
  Transmission Date: 20100525
  Serious: Yes (Death)
  Sender: FDA-Public Use
  Company Number: JP-EISAI INC.-E2020-05330-CLI-JP

PATIENT
  Sex: Male

DRUGS (1)
  1. ARICEPT [Suspect]
     Route: 048

REACTIONS (1)
  - DEATH [None]
